FAERS Safety Report 18307995 (Version 5)
Quarter: 2022Q2

REPORT INFORMATION
  Report Type: Report from Study
  Country: DE (occurrence: None)
  Receive Date: 20200924
  Receipt Date: 20220607
  Transmission Date: 20220720
  Serious: Yes (Hospitalization)
  Sender: FDA-Public Use
  Company Number: DE-ROCHE-2682222

PATIENT
  Age: 69 Year
  Sex: Male
  Weight: 112 kg

DRUGS (8)
  1. BORTEZOMIB [Suspect]
     Active Substance: BORTEZOMIB
     Indication: Waldenstrom^s macroglobulinaemia
     Dosage: 3 TIMES PER CYCLE (DAY 1, 8, 15). LAST ADMINISTRATION PRIOR TO REPORTED SAE: 02/JUL/2020
     Route: 058
     Dates: start: 20200129, end: 20200702
  2. IBRUTINIB [Suspect]
     Active Substance: IBRUTINIB
     Indication: Waldenstrom^s macroglobulinaemia
     Dosage: LAST ADMINISTRATION PRIOR TO REPORTED SAE: 08/SEP/2020
     Route: 048
     Dates: start: 20200129
  3. RITUXIMAB [Suspect]
     Active Substance: RITUXIMAB
     Indication: Waldenstrom^s macroglobulinaemia
     Route: 042
     Dates: start: 20200129, end: 20200129
  4. RITUXIMAB [Suspect]
     Active Substance: RITUXIMAB
     Indication: Waldenstrom^s macroglobulinaemia
     Route: 058
     Dates: start: 20200226, end: 20200226
  5. RITUXIMAB [Suspect]
     Active Substance: RITUXIMAB
     Dosage: LAST ADMINISTRATION PRIOR TO REPORTED SAE: 11/AUG/2020
     Route: 058
     Dates: start: 20200326
  6. ASPIRIN [Concomitant]
     Active Substance: ASPIRIN
     Indication: Hypertension
     Route: 048
     Dates: start: 20171214
  7. RAMIPRIL [Concomitant]
     Active Substance: RAMIPRIL
     Indication: Hypertension
     Route: 048
     Dates: start: 201801
  8. ATORVASTATIN [Concomitant]
     Active Substance: ATORVASTATIN
     Indication: Hypercholesterolaemia
     Route: 048

REACTIONS (2)
  - Transient ischaemic attack [Recovered/Resolved]
  - Hypertensive crisis [Recovered/Resolved]

NARRATIVE: CASE EVENT DATE: 20200909
